FAERS Safety Report 11744102 (Version 1)
Quarter: 2015Q4

REPORT INFORMATION
  Report Type: Other
  Country: FR (occurrence: FR)
  Receive Date: 20151116
  Receipt Date: 20151116
  Transmission Date: 20160304
  Serious: Yes (Hospitalization, Other)
  Sender: FDA-Public Use
  Company Number: FR-PURDUE-USA-2015-0127451

PATIENT
  Age: 72 Year
  Sex: Male

DRUGS (1)
  1. ZOLPIDEM TARTRATE. [Suspect]
     Active Substance: ZOLPIDEM TARTRATE
     Indication: PRODUCT USED FOR UNKNOWN INDICATION
     Route: 048

REACTIONS (4)
  - Coordination abnormal [Unknown]
  - Aphasia [Unknown]
  - Ataxia [Unknown]
  - Drug abuse [Unknown]
